FAERS Safety Report 8949856 (Version 1)
Quarter: 2012Q4

REPORT INFORMATION
  Report Type: Report from Study
  Country: US (occurrence: US)
  Receive Date: 20121206
  Receipt Date: 20121206
  Transmission Date: 20130627
  Serious: Yes (Hospitalization)
  Sender: FDA-Public Use
  Company Number: US-EISAI INC-E7389-03308-CLI-US

PATIENT
  Age: 63 Year
  Sex: Female
  Weight: 85 kg

DRUGS (10)
  1. HALAVEN [Suspect]
     Indication: BREAST CANCER
     Route: 041
     Dates: start: 20121002, end: 20121106
  2. LEVOXYL [Concomitant]
     Indication: HYPOTHYROIDISM
     Dates: start: 1998
  3. CYTOMEL [Concomitant]
     Indication: HYPOTHYROIDISM
     Dates: start: 1998
  4. HYDROCHLOROTHIAZIDE [Concomitant]
     Indication: HYPERTENSION
     Dates: start: 2012
  5. CALTRATE WITH VITAMIN D [Concomitant]
     Indication: SUPPLEMENTATION THERAPY
     Dosage: UNKNOWN
     Dates: start: 2000
  6. ASA [Concomitant]
     Indication: PROPHYLAXIS
     Dates: start: 2000
  7. FLUSH FREE NIACIN [Concomitant]
     Indication: SUPPLEMENTATION THERAPY
     Dates: start: 2012
  8. PANTOPRAZOLE [Concomitant]
     Indication: ESOPHAGEAL REFLUX
     Dates: start: 2011
  9. MIRALAX [Concomitant]
     Indication: CONSTIPATION
     Dates: start: 2008
  10. METOPROLOL [Concomitant]
     Indication: HYPERTENSION
     Dates: start: 2012

REACTIONS (1)
  - Tracheobronchitis [Recovered/Resolved with Sequelae]
